FAERS Safety Report 8222026-2 (Version None)
Quarter: 2012Q1

REPORT INFORMATION
  Report Type: 
  Country: None (occurrence: None)
  Receive Date: 20120320
  Receipt Date: 20120305
  Transmission Date: 20120608
  Serious: Yes (Congenital Anomaly, Other)
  Sender: FDA-Public Use
  Company Number: HU-WATSON-2012-04716

PATIENT

DRUGS (3)
  1. PHENOBARBITAL TAB [Suspect]
     Indication: FOETAL EXPOSURE DURING PREGNANCY
  2. PHENACEMIDE [Suspect]
     Indication: FOETAL EXPOSURE DURING PREGNANCY
  3. PRIMIDONE [Suspect]
     Indication: FOETAL EXPOSURE DURING PREGNANCY
     Dosage: UNK
     Route: 064

REACTIONS (7)
  - CONGENITAL ABSENCE OF VERTEBRA [None]
  - KIDNEY MALFORMATION [None]
  - MICROTIA [None]
  - FOETAL EXPOSURE DURING PREGNANCY [None]
  - PULMONARY ARTERY STENOSIS CONGENITAL [None]
  - RECTAL STENOSIS [None]
  - TALIPES [None]
